FAERS Safety Report 24896130 (Version 1)
Quarter: 2025Q1

REPORT INFORMATION
  Report Type: Spontaneous
  Country: DE (occurrence: DE)
  Receive Date: 20250128
  Receipt Date: 20250128
  Transmission Date: 20250409
  Serious: Yes (Hospitalization, Other)
  Sender: TEVA
  Company Number: None

PATIENT
  Age: 5 Year
  Sex: Male
  Weight: 19.9 kg

DRUGS (13)
  1. METHOTREXATE [Suspect]
     Active Substance: METHOTREXATE
     Indication: B-cell prolymphocytic leukaemia
     Route: 037
     Dates: start: 20231205, end: 20231205
  2. METHOTREXATE [Suspect]
     Active Substance: METHOTREXATE
     Indication: B-cell prolymphocytic leukaemia
     Route: 065
     Dates: start: 20231206, end: 20231207
  3. DEXAMETHASONE [Suspect]
     Active Substance: DEXAMETHASONE
     Indication: B-cell prolymphocytic leukaemia
     Dosage: 2 MG, TWICE DAILY
     Route: 048
     Dates: start: 20231205, end: 20231211
  4. AMBISOME [Concomitant]
     Active Substance: AMPHOTERICIN B
     Indication: Immunosuppression
     Route: 065
     Dates: start: 20231102
  5. CYCLOPHOSPHAMIDE [Suspect]
     Active Substance: CYCLOPHOSPHAMIDE
     Indication: B-cell prolymphocytic leukaemia
     Route: 042
     Dates: start: 20231207, end: 20231209
  6. PREDNISOLONE [Suspect]
     Active Substance: PREDNISOLONE
     Indication: B-cell prolymphocytic leukaemia
     Route: 037
     Dates: start: 20231205, end: 20231205
  7. CYTARABINE [Suspect]
     Active Substance: CYTARABINE
     Indication: B-cell prolymphocytic leukaemia
     Dosage: 1620 MG, TWICE DAILY, SECOND REGIMEN
     Route: 042
     Dates: start: 20231210, end: 20231210
  8. CYTARABINE [Suspect]
     Active Substance: CYTARABINE
     Indication: B-cell prolymphocytic leukaemia
     Route: 037
     Dates: start: 20231205, end: 20231205
  9. BESPONSA [Suspect]
     Active Substance: INOTUZUMAB OZOGAMICIN
     Indication: B-cell prolymphocytic leukaemia
     Route: 042
     Dates: start: 20231107, end: 20231123
  10. Novalgin [Concomitant]
     Indication: Product used for unknown indication
     Route: 048
     Dates: start: 20231208
  11. PEGASPARGASE [Suspect]
     Active Substance: PEGASPARGASE
     Indication: B-cell prolymphocytic leukaemia
     Route: 042
     Dates: start: 20231211, end: 20231211
  12. VINCRISTINE [Suspect]
     Active Substance: VINCRISTINE
     Indication: B-cell prolymphocytic leukaemia
     Route: 065
     Dates: start: 20231206, end: 20231211
  13. COTRIMOXAZOLE [Concomitant]
     Active Substance: SULFAMETHOXAZOLE\TRIMETHOPRIM
     Indication: Immunosuppression
     Route: 048
     Dates: start: 202311

REACTIONS (3)
  - Mucosal inflammation [Recovered/Resolved]
  - Pyrexia [Recovered/Resolved]
  - Myelosuppression [Recovered/Resolved]

NARRATIVE: CASE EVENT DATE: 20231214
